FAERS Safety Report 8347899-4 (Version None)
Quarter: 2012Q2

REPORT INFORMATION
  Report Type: 
  Country: None (occurrence: None)
  Receive Date: 20120509
  Receipt Date: 20120427
  Transmission Date: 20120825
  Serious: Yes (Other)
  Sender: FDA-Public Use
  Company Number: DE-BRISTOL-MYERS SQUIBB COMPANY-16558009

PATIENT

DRUGS (7)
  1. LAMIVUDINE (EPIVIR HBV) [Suspect]
     Indication: HIV INFECTION
  2. SUSTIVA [Suspect]
     Indication: HIV INFECTION
  3. CISPLATIN [Suspect]
  4. ZERIT [Suspect]
     Indication: HIV INFECTION
  5. VIDEX [Suspect]
     Indication: HIV INFECTION
  6. NELFINAVIR MESYLATE [Suspect]
     Indication: HIV INFECTION
  7. FLUOROURACIL [Suspect]

REACTIONS (6)
  - DRUG RESISTANCE [None]
  - ANAL CANCER [None]
  - LIPODYSTROPHY ACQUIRED [None]
  - HYPERLIPIDAEMIA [None]
  - POLYNEUROPATHY [None]
  - DIARRHOEA [None]
